FAERS Safety Report 22160911 (Version 1)
Quarter: 2023Q1

REPORT INFORMATION
  Report Type: Spontaneous
  Country: US (occurrence: None)
  Receive Date: 20230330
  Receipt Date: 20230330
  Transmission Date: 20230417
  Serious: No
  Sender: FDA-Public Use
  Company Number: None

PATIENT
  Age: 64 Year
  Sex: Female
  Weight: 114.21 kg

DRUGS (17)
  1. IBRANCE [Suspect]
     Active Substance: PALBOCICLIB
     Indication: Breast cancer female
     Dosage: OTHER FREQUENCY : 21DOF28DAYS;?
     Route: 048
     Dates: start: 202212
  2. ANASTROZOLE [Concomitant]
  3. ASPIRIN [Concomitant]
  4. CINNAMON [Concomitant]
  5. COENZYME Q10 [Concomitant]
     Active Substance: DIETARY SUPPLEMENT\UBIDECARENONE
  6. EMMA [Concomitant]
  7. ESSENTIAL AMINO ACIDS [Concomitant]
  8. GLUCOSAMINE-CHONDROITIN [Concomitant]
  9. IPRATROPIUM-ALBUTEROL [Concomitant]
  10. MELOXICAM [Concomitant]
  11. METABOLIC GREENS [Concomitant]
  12. MULTIVITAMIN [Concomitant]
  13. SIMVASTATIN [Concomitant]
  14. SUPER B-COMPLEX [Concomitant]
  15. VITAMIN D3 [Concomitant]
  16. ZINC [Concomitant]
  17. ZYRTEC [Concomitant]

REACTIONS (5)
  - Productive cough [None]
  - Dyspnoea [None]
  - Rhinitis [None]
  - Nasopharyngitis [None]
  - Allergic respiratory symptom [None]
